FAERS Safety Report 10648621 (Version 1)
Quarter: 2014Q4

REPORT INFORMATION
  Report Type: Spontaneous
  Country: US (occurrence: None)
  Receive Date: 20141211
  Receipt Date: 20141211
  Transmission Date: 20150529
  Serious: Yes (Other)
  Sender: FDA-Public Use
  Company Number: None

PATIENT
  Sex: Male

DRUGS (2)
  1. FORTEO [Suspect]
     Active Substance: TERIPARATIDE
     Indication: CHONDROPATHY
     Dosage: 600 MCG/2.4 ML PEN 20 MCG ONCE DAILY INJECT SUB-CUTANEOUS
     Route: 058
     Dates: start: 201411, end: 201412
  2. FORTEO [Suspect]
     Active Substance: TERIPARATIDE
     Indication: OSTEOPOROSIS
     Dosage: 600 MCG/2.4 ML PEN 20 MCG ONCE DAILY INJECT SUB-CUTANEOUS
     Route: 058
     Dates: start: 201411, end: 201412

REACTIONS (1)
  - Pruritus [None]
